FAERS Safety Report 21209389 (Version 1)
Quarter: 2022Q3

REPORT INFORMATION
  Report Type: Spontaneous
  Country: US (occurrence: US)
  Receive Date: 20220813
  Receipt Date: 20220813
  Transmission Date: 20221027
  Serious: No
  Sender: FDA-Public Use
  Company Number: US-JNJFOC-20220807365

PATIENT
  Age: 78 Year
  Sex: Male

DRUGS (1)
  1. ZYTIGA [Suspect]
     Active Substance: ABIRATERONE ACETATE
     Indication: Product used for unknown indication
     Dosage: 250 MG TAB TAKE 4 TABLETS BY MOUTH ONCE DAILY AS DIRECTED
     Route: 048
     Dates: start: 20220603

REACTIONS (2)
  - Off label use [Unknown]
  - Suspected COVID-19 [Unknown]
